FAERS Safety Report 21184030 (Version 2)
Quarter: 2022Q3

REPORT INFORMATION
  Report Type: Spontaneous
  Country: CN (occurrence: CN)
  Receive Date: 20220808
  Receipt Date: 20220811
  Transmission Date: 20221026
  Serious: Yes (Life-Threatening, Hospitalization)
  Sender: FDA-Public Use
  Company Number: CN-NOVARTISPH-NVSC2022CN177689

PATIENT
  Age: 62 Year
  Sex: Female
  Weight: 53 kg

DRUGS (7)
  1. OCTREOTIDE ACETATE [Suspect]
     Active Substance: OCTREOTIDE ACETATE
     Indication: Pancreatic disorder
     Dosage: 0.3 G, TID
     Route: 065
     Dates: start: 20220722, end: 20220727
  2. OCTREOTIDE ACETATE [Suspect]
     Active Substance: OCTREOTIDE ACETATE
  3. OCTREOTIDE ACETATE [Suspect]
     Active Substance: OCTREOTIDE ACETATE
  4. EXEMESTANE [Concomitant]
     Active Substance: EXEMESTANE
     Indication: Endocrine disorder prophylaxis
     Dosage: UNK
     Route: 065
  5. PIPERACILLIN SODIUM [Concomitant]
     Active Substance: PIPERACILLIN SODIUM
     Indication: Infection prophylaxis
     Dosage: UNK
     Route: 065
  6. TAZOBACTAM [Concomitant]
     Active Substance: TAZOBACTAM
     Indication: Infection prophylaxis
     Dosage: UNK
     Route: 065
  7. SODIUM CHLORIDE [Concomitant]
     Active Substance: SODIUM CHLORIDE
     Indication: Solvent sensitivity
     Dosage: 50 ML, TID
     Route: 065
     Dates: start: 20220722, end: 20220727

REACTIONS (1)
  - Bradycardia [Recovered/Resolved]

NARRATIVE: CASE EVENT DATE: 20220724
